FAERS Safety Report 23423138 (Version 1)
Quarter: 2024Q1

REPORT INFORMATION
  Report Type: Spontaneous
  Country: IT (occurrence: IT)
  Receive Date: 20240119
  Receipt Date: 20240119
  Transmission Date: 20240410
  Serious: Yes (Death, Hospitalization)
  Sender: FDA-Public Use
  Company Number: IT-PFIZER INC-PV202400002319

PATIENT
  Age: 72 Year
  Sex: Male

DRUGS (1)
  1. VORICONAZOLE [Suspect]
     Active Substance: VORICONAZOLE
     Indication: Bronchopulmonary aspergillosis
     Dosage: 600 MILLIGRAM, QD, 300 MG, 2X/DAY (EVERY 12H)
     Route: 042

REACTIONS (1)
  - Drug ineffective [Fatal]
